FAERS Safety Report 4740319-8 (Version None)
Quarter: 2005Q3

REPORT INFORMATION
  Report Type: 
  Country: None (occurrence: None)
  Receive Date: 20050729
  Receipt Date: 20050413
  Transmission Date: 20060218
  Serious: Yes (Death, Life-Threatening, Other)
  Sender: FDA-Public Use
  Company Number: RB-1468-2005

PATIENT
  Age: 75 Year
  Sex: Male
  Weight: 77.1115 kg

DRUGS (4)
  1. SUBOXONE [Suspect]
     Indication: DRUG DEPENDENCE
     Dosage: 4 MG DAILY SL
     Route: 060
     Dates: start: 20050315
  2. ATIVAN [Concomitant]
  3. LIPITOR [Concomitant]
  4. AMBIEN [Concomitant]

REACTIONS (1)
  - DEATH [None]
